FAERS Safety Report 4345955-9 (Version None)
Quarter: 2004Q2

REPORT INFORMATION
  Report Type: 
  Country: None (occurrence: None)
  Receive Date: 20040420
  Receipt Date: 20040407
  Transmission Date: 20050107
  Serious: Yes (Death, Hospitalization)
  Sender: FDA-Public Use
  Company Number: F01200400588

PATIENT
  Age: 62 Year
  Sex: Male

DRUGS (6)
  1. (OXALIPLATIN) - SOLUTION - 130 MG/M2 [Suspect]
     Indication: COLORECTAL CANCER METASTATIC
     Dosage: 130 MG/M2 Q3W, INTRAVENOUS NOS
     Route: 042
  2. (CAPECITABINE) - TABLET - 1000 MG/M2 [Suspect]
     Dosage: 1000 MG/M2 BID ORAL
     Route: 048
  3. BLOKIUM DIU (ATENOLOL / CHLORTHALIDONE) [Concomitant]
  4. FORTASEC (LOPERAMIDE) [Concomitant]
  5. BOI K (POTASSIUM ASCORBATE) [Concomitant]
  6. PRIMPERAN TAB [Concomitant]

REACTIONS (15)
  - COLORECTAL CANCER METASTATIC [None]
  - CONFUSIONAL STATE [None]
  - DEHYDRATION [None]
  - DIARRHOEA [None]
  - ELECTROLYTE IMBALANCE [None]
  - HEPATIC CIRRHOSIS [None]
  - HEPATIC ENCEPHALOPATHY [None]
  - HEPATIC FAILURE [None]
  - HYPOCALCAEMIA [None]
  - HYPOKALAEMIA [None]
  - HYPONATRAEMIA [None]
  - LUNG INFILTRATION [None]
  - MALIGNANT NEOPLASM PROGRESSION [None]
  - NAUSEA [None]
  - VOMITING [None]
